FAERS Safety Report 5501774-9 (Version None)
Quarter: 2007Q4

REPORT INFORMATION
  Report Type: 
  Country: None (occurrence: None)
  Receive Date: 20071018
  Receipt Date: 20070331
  Transmission Date: 20080405
  Serious: Yes (Other)
  Sender: FDA-Public Use
  Company Number: 2007025753

PATIENT
  Age: 50 Year
  Sex: Female
  Weight: 51.3 kg

DRUGS (10)
  1. NEURONTIN [Suspect]
     Indication: BIPOLAR DISORDER
     Dosage: 1200 MG
     Dates: start: 20020101
  2. GABAPENTIN [Suspect]
     Indication: BIPOLAR DISORDER
  3. PROVIGIL [Suspect]
     Indication: FATIGUE
     Dates: end: 20070301
  4. LUVOX [Concomitant]
  5. KLONOPIN [Concomitant]
  6. OSCAL (CALCIUM CARBONATE) [Concomitant]
  7. MULTIVITAMIN [Concomitant]
  8. ACETYLSALICYLIC ACID SRT [Concomitant]
  9. RED YEAST RICE (RED YEAST RICE) [Concomitant]
  10. CLARITIN [Concomitant]

REACTIONS (3)
  - BLOOD CHOLESTEROL INCREASED [None]
  - HYPERTENSION [None]
  - TREMOR [None]
